FAERS Safety Report 4477711-5 (Version None)
Quarter: 2004Q4

REPORT INFORMATION
  Report Type: 
  Country: None (occurrence: None)
  Receive Date: 20041014
  Receipt Date: 20040929
  Transmission Date: 20050328
  Serious: Yes (Hospitalization)
  Sender: FDA-Public Use
  Company Number: 202788

PATIENT
  Age: 35 Year
  Sex: Female

DRUGS (8)
  1. AVONEX [Suspect]
     Indication: MULTIPLE SCLEROSIS
  2. THYROXIN [Concomitant]
  3. LEVLEN 28 [Concomitant]
  4. CLONAZEPAM [Concomitant]
  5. PAXIL [Concomitant]
  6. ALBUTEROL [Concomitant]
  7. BACLOFEN [Concomitant]
  8. METHOCARBAMOL [Concomitant]

REACTIONS (5)
  - BENIGN NEOPLASM OF THYROID GLAND [None]
  - GOITRE [None]
  - POST PROCEDURAL COMPLICATION [None]
  - SWELLING [None]
  - THYROIDITIS CHRONIC [None]
